FAERS Safety Report 6478729-3 (Version None)
Quarter: 2009Q4

REPORT INFORMATION
  Report Type: 
  Country: None (occurrence: None)
  Receive Date: 20091207
  Receipt Date: 20091123
  Transmission Date: 20100525
  Serious: Yes (Hospitalization)
  Sender: FDA-Public Use
  Company Number: DE-MYLANLABS-2009S1020336

PATIENT
  Age: 70 Year
  Sex: Male

DRUGS (13)
  1. ALLOPURINOL [Suspect]
     Indication: DRUG USE FOR UNKNOWN INDICATION
     Dosage: DAILY DOSE: 100 MG MILLIGRAM(S) EVERY DAY
     Route: 048
     Dates: end: 20090519
  2. ERGENYL [Interacting]
     Indication: DRUG USE FOR UNKNOWN INDICATION
     Dosage: DAILY DOSE: 300 MG MILLIGRAM(S) EVERY DAY
     Route: 048
     Dates: start: 20090526
  3. ERGENYL [Interacting]
     Dosage: DAILY DOSE: 450 MG MILLIGRAM(S) EVERY DAY
     Route: 048
     Dates: start: 20090527, end: 20090528
  4. ERGENYL [Interacting]
     Dosage: DAILY DOSE: 600 MG MILLIGRAM(S) EVERY DAY
     Route: 048
     Dates: start: 20090529, end: 20090603
  5. ERGENYL [Interacting]
     Dosage: DAILY DOSE: 900 MG MILLIGRAM(S) EVERY DAY
     Route: 048
     Dates: start: 20090604, end: 20090605
  6. QUILONUM /00033702/ [Interacting]
     Indication: DRUG USE FOR UNKNOWN INDICATION
     Dosage: DAILY DOSE: 900 MG MILLIGRAM(S) EVERY DAY
     Route: 048
     Dates: end: 20090519
  7. EUNERPAN [Interacting]
     Indication: DRUG USE FOR UNKNOWN INDICATION
     Dosage: DAILY DOSE: 100 MG MILLIGRAM(S) EVERY DAY
     Route: 048
     Dates: start: 20090525, end: 20090604
  8. EUNERPAN [Interacting]
     Dosage: DAILY DOSE: 50 MG MILLIGRAM(S) EVERY DAY
     Route: 048
     Dates: start: 20090525, end: 20090604
  9. EUNERPAN [Interacting]
     Dosage: DAILY DOSE: 25 MG MILLIGRAM(S) EVERY DAY
     Route: 048
     Dates: start: 20090605, end: 20090609
  10. AKINETON /00079501/ [Interacting]
     Indication: DRUG USE FOR UNKNOWN INDICATION
     Dosage: DAILY DOSE: 4 MG MILLIGRAM(S) EVERY DAY
     Route: 048
  11. HALDOL [Interacting]
     Indication: DRUG USE FOR UNKNOWN INDICATION
     Dosage: 100/21 TAGE MG
     Route: 030
  12. ENALAPRIL [Interacting]
     Indication: DRUG USE FOR UNKNOWN INDICATION
     Dosage: 10/25 MG
     Route: 048
     Dates: end: 20090519
  13. TORSEMIDE [Concomitant]
     Indication: DRUG USE FOR UNKNOWN INDICATION
     Route: 048
     Dates: start: 20090519

REACTIONS (2)
  - ATRIOVENTRICULAR BLOCK [None]
  - DRUG INTERACTION [None]
